FAERS Safety Report 13091849 (Version 1)
Quarter: 2017Q1

REPORT INFORMATION
  Report Type: Spontaneous
  Country: US (occurrence: US)
  Receive Date: 20170106
  Receipt Date: 20170106
  Transmission Date: 20170428
  Serious: Yes (Hospitalization)
  Sender: FDA-Public Use
  Company Number: US-PROCTER+GAMBLE-GS16158790

PATIENT
  Age: 88 Year
  Sex: Male

DRUGS (2)
  1. PEPTO-BISMOL [Suspect]
     Active Substance: BISMUTH SUBSALICYLATE
     Dosage: CHEWS A TABLET EVERY 3-4 HOURS FOR THE LAST 2 WEEKS
     Route: 048
     Dates: start: 201612
  2. PEPTO-BISMOL MAX STRENGTH [Suspect]
     Active Substance: BISMUTH SUBSALICYLATE
     Dosage: TAKES A CAPFUL EVERY 3-4 HOURS FOR THE LAST 2 WEEKS
     Route: 048
     Dates: start: 201612

REACTIONS (6)
  - Nausea [Not Recovered/Not Resolved]
  - Abdominal discomfort [Not Recovered/Not Resolved]
  - Renal injury [Not Recovered/Not Resolved]
  - Deafness [Not Recovered/Not Resolved]
  - Toxicity to various agents [Not Recovered/Not Resolved]
  - Product use issue [Unknown]

NARRATIVE: CASE EVENT DATE: 201612
